FAERS Safety Report 4984343-9 (Version None)
Quarter: 2006Q2

REPORT INFORMATION
  Report Type: 
  Country: None (occurrence: None)
  Receive Date: 20060420
  Receipt Date: 20060411
  Transmission Date: 20061013
  Serious: Yes (Other)
  Sender: FDA-Public Use
  Company Number: 2006-00172

PATIENT
  Age: 64 Year
  Sex: Male
  Weight: 82 kg

DRUGS (15)
  1. VELCADE [Suspect]
     Indication: B-CELL LYMPHOMA
     Dosage: 3.00 MG INTRAVENOUS
     Route: 042
     Dates: start: 20051115, end: 20060112
  2. CEFIXIME (CEFIXIME) [Concomitant]
  3. CIPROFLOXACIN [Concomitant]
  4. ALLOPURINOL [Concomitant]
  5. BACTRIM [Concomitant]
  6. FOLIC ACID [Concomitant]
  7. ACETAMINOPHEN [Concomitant]
  8. METRONIDAZOLE [Concomitant]
  9. LOPERAMIDE HCL [Concomitant]
  10. OMEPRAZOLE [Concomitant]
  11. ALUMINUM HYDROXIDE TAB [Concomitant]
  12. QUININE SULFATE [Concomitant]
  13. THIAMINE (THIAMINE) [Concomitant]
  14. VALACYCLOVIR [Concomitant]
  15. PYRIDOXINE (PYRIDOXINE) [Concomitant]

REACTIONS (2)
  - DRUG HYPERSENSITIVITY [None]
  - TOXIC SKIN ERUPTION [None]
